FAERS Safety Report 5255004-6 (Version None)
Quarter: 2007Q1

REPORT INFORMATION
  Report Type: 
  Country: None (occurrence: None)
  Receive Date: 20070305
  Receipt Date: 20070220
  Transmission Date: 20070707
  Serious: Yes (Other)
  Sender: FDA-Public Use
  Company Number: PHNR2007AU00731

PATIENT
  Sex: Female

DRUGS (1)
  1. ESTRADERM [Suspect]
     Indication: HORMONE REPLACEMENT THERAPY
     Dosage: ESTRADERM 25MCG/24H
     Route: 062

REACTIONS (5)
  - AMNESIA [None]
  - DEPRESSION [None]
  - HEADACHE [None]
  - NAUSEA [None]
  - WEIGHT INCREASED [None]
